FAERS Safety Report 15727704 (Version 1)
Quarter: 2018Q4

REPORT INFORMATION
  Report Type: Spontaneous
  Country: US (occurrence: US)
  Receive Date: 20181217
  Receipt Date: 20181217
  Transmission Date: 20190205
  Serious: No
  Sender: FDA-Public Use
  Company Number: US-NOVEN PHARMACEUTICALS, INC.-US2018000435

PATIENT

DRUGS (5)
  1. MINIVELLE [Suspect]
     Active Substance: ESTRADIOL
     Dosage: APPLYING TWO PATCHES OF 0.025 MG
     Route: 062
  2. MINIVELLE [Suspect]
     Active Substance: ESTRADIOL
     Dosage: 0.075 MG, UNK
     Route: 062
  3. MINIVELLE [Suspect]
     Active Substance: ESTRADIOL
     Dosage: 0.0375 MG
     Route: 062
  4. MINIVELLE [Suspect]
     Active Substance: ESTRADIOL
     Indication: HOT FLUSH
     Dosage: 0.025 MG, UNK
     Route: 062
  5. MINIVELLE [Suspect]
     Active Substance: ESTRADIOL
     Dosage: 0.1 MG, UNK
     Route: 062
     Dates: start: 2017

REACTIONS (8)
  - Menopausal symptoms [Unknown]
  - Therapy cessation [Recovered/Resolved]
  - Product adhesion issue [Recovered/Resolved]
  - Product quality issue [Unknown]
  - Night sweats [Recovered/Resolved]
  - Product dose omission [Recovered/Resolved]
  - Product dispensing error [Recovered/Resolved]
  - Wrong technique in product usage process [Recovered/Resolved]

NARRATIVE: CASE EVENT DATE: 2017
